FAERS Safety Report 23595801 (Version 1)
Quarter: 2024Q1

REPORT INFORMATION
  Report Type: Spontaneous
  Country: US (occurrence: US)
  Receive Date: 20240305
  Receipt Date: 20240305
  Transmission Date: 20240409
  Serious: No
  Sender: FDA-Public Use
  Company Number: US-Bion-012659

PATIENT
  Age: 86 Year
  Sex: Male

DRUGS (2)
  1. LOPERAMIDE HYDROCHLORIDE [Suspect]
     Active Substance: LOPERAMIDE HYDROCHLORIDE
     Indication: Diarrhoea
     Dosage: 1 PILL
     Dates: start: 20240226
  2. LOVASTATIN [Concomitant]
     Active Substance: LOVASTATIN
     Indication: Hypertension

REACTIONS (1)
  - Intentional product misuse [Unknown]
